FAERS Safety Report 9778783 (Version 1)
Quarter: 2013Q4

REPORT INFORMATION
  Report Type: Report from Study
  Country: CA (occurrence: CA)
  Receive Date: 20131223
  Receipt Date: 20131223
  Transmission Date: 20140711
  Serious: Yes (Hospitalization)
  Sender: FDA-Public Use
  Company Number: CA-JNJFOC-20131208955

PATIENT
  Age: 17 Year
  Sex: Male
  Weight: 66 kg

DRUGS (3)
  1. REMICADE [Suspect]
     Indication: CROHN^S DISEASE
     Route: 042
     Dates: start: 20131213
  2. REMICADE [Suspect]
     Indication: CROHN^S DISEASE
     Dosage: 0-2-6 AND Q 8 WEEKS
     Route: 042
     Dates: start: 20131204
  3. REMICADE [Suspect]
     Indication: CROHN^S DISEASE
     Dosage: WEEK 6
     Route: 042
     Dates: start: 201312

REACTIONS (1)
  - Crohn^s disease [Unknown]
